FAERS Safety Report 5128858-1 (Version None)
Quarter: 2006Q4

REPORT INFORMATION
  Report Type: 
  Country: None (occurrence: None)
  Receive Date: 20061017
  Receipt Date: 20050907
  Transmission Date: 20070319
  Serious: No
  Sender: FDA-Public Use
  Company Number: US-GLAXOSMITHKLINE-A0573302A

PATIENT
  Age: 68 Year
  Sex: Female

DRUGS (1)
  1. CEFTIN [Suspect]
     Indication: LYME DISEASE
     Dosage: 500MG TWICE PER DAY
     Route: 048
     Dates: start: 20050801

REACTIONS (1)
  - MALAISE [None]
